FAERS Safety Report 10251117 (Version 1)
Quarter: 2014Q2

REPORT INFORMATION
  Report Type: Report from Study
  Country: JP (occurrence: JP)
  Receive Date: 20140620
  Receipt Date: 20140620
  Transmission Date: 20141212
  Serious: Yes (Hospitalization, Other)
  Sender: FDA-Public Use
  Company Number: JP-GILEAD-2014-0105612

PATIENT
  Age: 81 Year
  Sex: Female

DRUGS (29)
  1. AMBRISENTAN [Suspect]
     Indication: PULMONARY ARTERIAL HYPERTENSION
     Dosage: 2.5 MG, QD
     Route: 048
     Dates: start: 20131008, end: 20131031
  2. ADCIRCA [Concomitant]
     Indication: PULMONARY ARTERIAL HYPERTENSION
     Route: 048
  3. SELBEX [Concomitant]
     Route: 048
  4. PREDONINE                          /00016201/ [Concomitant]
     Route: 048
  5. ZOPICOOL [Concomitant]
     Route: 048
     Dates: end: 20131031
  6. ARICEPT [Concomitant]
     Route: 048
  7. SEROQUEL [Concomitant]
     Route: 048
  8. MUCOSTA [Concomitant]
     Route: 048
  9. PARIET [Concomitant]
     Route: 048
  10. TRAMCET [Concomitant]
     Route: 048
  11. LUPRAC [Concomitant]
     Route: 048
     Dates: end: 20140309
  12. PROGRAF [Concomitant]
     Route: 048
  13. MICAMLO [Concomitant]
     Route: 048
     Dates: start: 20131007, end: 20131204
  14. FERROMIA [Concomitant]
     Route: 048
     Dates: start: 20131101
  15. ZOPICLONE [Concomitant]
     Route: 048
     Dates: start: 20131101
  16. ATELEC [Concomitant]
     Route: 048
     Dates: start: 20131112, end: 20140317
  17. UNKNOWN [Concomitant]
     Route: 048
  18. INFLUENZA VACCINE [Concomitant]
     Indication: PROPHYLAXIS
     Route: 058
     Dates: start: 20131112, end: 20131112
  19. AIMIX [Concomitant]
     Route: 048
     Dates: start: 20131205, end: 20140320
  20. PAXIL                              /00830802/ [Concomitant]
     Route: 048
     Dates: start: 20131225, end: 20140120
  21. FORTEO [Concomitant]
     Route: 058
     Dates: start: 20140120
  22. ALMYLAR [Concomitant]
     Route: 048
     Dates: start: 20140217, end: 20140311
  23. TRICHLORMETHIAZIDE [Concomitant]
     Route: 048
     Dates: start: 20140306
  24. FUNGIZONE [Concomitant]
     Route: 048
     Dates: start: 20140307, end: 20140320
  25. FEBURIC [Concomitant]
     Route: 048
     Dates: start: 20140308
  26. RISPERDAL [Concomitant]
     Route: 048
     Dates: start: 20140309, end: 20140318
  27. ADALAT [Concomitant]
     Route: 048
     Dates: start: 20140320
  28. OLMETEC [Concomitant]
     Route: 048
     Dates: start: 20140320
  29. HERBESSER R [Concomitant]
     Route: 048
     Dates: start: 20140320

REACTIONS (7)
  - Anal haemorrhage [Recovering/Resolving]
  - Protein urine [Not Recovered/Not Resolved]
  - Blood urine present [Not Recovered/Not Resolved]
  - Eczema asteatotic [Recovering/Resolving]
  - Gastrooesophageal reflux disease [Recovering/Resolving]
  - Back pain [Recovering/Resolving]
  - Oedema peripheral [Not Recovered/Not Resolved]
